FAERS Safety Report 4603963-4 (Version None)
Quarter: 2005Q1

REPORT INFORMATION
  Report Type: 
  Country: None (occurrence: None)
  Receive Date: 20050310
  Receipt Date: 20050301
  Transmission Date: 20050727
  Serious: Yes (Hospitalization)
  Sender: FDA-Public Use
  Company Number: JP-ROCHE-397475

PATIENT
  Age: 73 Year
  Sex: Male

DRUGS (2)
  1. TAMIFLU [Suspect]
     Indication: INFLUENZA
     Route: 048
     Dates: start: 20050222, end: 20050224
  2. FURTULON [Concomitant]
     Route: 048

REACTIONS (2)
  - ASTHMA [None]
  - ERYTHEMA [None]
